FAERS Safety Report 12235301 (Version 3)
Quarter: 2016Q2

REPORT INFORMATION
  Report Type: Spontaneous
  Country: IT (occurrence: IT)
  Receive Date: 20160404
  Receipt Date: 20160523
  Transmission Date: 20160815
  Serious: Yes (Other)
  Sender: FDA-Public Use
  Company Number: IT-BRISTOL-MYERS SQUIBB COMPANY-BMS-2016-022084

PATIENT
  Age: 36 Year
  Sex: Female

DRUGS (1)
  1. KENACORT [Suspect]
     Active Substance: TRIAMCINOLONE
     Indication: RHINITIS
     Dosage: UNK
     Route: 030
     Dates: start: 201010, end: 201011

REACTIONS (7)
  - Cushing^s syndrome [Not Recovered/Not Resolved]
  - Drug prescribing error [Unknown]
  - Osteopenia [Unknown]
  - Depression [Unknown]
  - Malaise [Unknown]
  - Arthritis [Unknown]
  - Adrenal insufficiency [Not Recovered/Not Resolved]

NARRATIVE: CASE EVENT DATE: 201012
